FAERS Safety Report 5654600-1 (Version None)
Quarter: 2008Q1

REPORT INFORMATION
  Report Type: 
  Country: None (occurrence: None)
  Receive Date: 20080307
  Receipt Date: 20080226
  Transmission Date: 20080703
  Serious: Yes (Other)
  Sender: FDA-Public Use
  Company Number: FR-WYE-G01095508

PATIENT
  Sex: Male
  Weight: 70 kg

DRUGS (2)
  1. REFACTO [Suspect]
     Indication: FACTOR VIII DEFICIENCY
     Dosage: TREATMENT ON DEMAND, THEN SINCE SEVERAL MONTH, PROPHYLAXIS AT 2000 IU, 30 IU/KG THREE TIMES PER WEEK
     Route: 042
     Dates: start: 20030101, end: 20080201
  2. REFACTO [Suspect]
     Dosage: 4000 IU, 57 IU/KG, FOR PROPHYLAXIS FOR SURGERY
     Route: 042
     Dates: start: 20080219

REACTIONS (3)
  - COAGULATION FACTOR VIII LEVEL DECREASED [None]
  - DRUG INEFFECTIVE [None]
  - HAEMARTHROSIS [None]
